FAERS Safety Report 7220336 (Version 3)
Quarter: 2013Q3

REPORT INFORMATION
  Report Type: Spontaneous
  Country: None (occurrence: None)
  Receive Date: 20091202
  Receipt Date: 20130708
  Transmission Date: 20140515
  Serious: Yes (Hospitalization, Other)
  Sender: FDA-Public Use
  Company Number: AUR-APL-2009-01394

PATIENT
  Age: 51 Year
  Sex: Male

DRUGS (6)
  1. PAROXETINE (PAROXETINE) [Suspect]
     Indication: PRODUCT USED FOR UNKNOWN INDICATION
  2. SERTRALINE [Suspect]
     Indication: DEPRESSED MOOD
     Dosage: ORAL
     Route: 048
     Dates: start: 20080520, end: 200808
  3. MILNACIPRAN [Suspect]
     Indication: PRODUCT USED FOR UNKNOWN INDICATION
  4. LITHIUM [Suspect]
     Indication: PRODUCT USED FOR UNKNOWN INDICATION
  5. NORTRIPTYLINE [Suspect]
     Indication: PRODUCT USED FOR UNKNOWN INDICATION
  6. MAPROTILINE HYDROCHLORIDE [Suspect]
     Indication: PRODUCT USED FOR UNKNOWN INDICATION

REACTIONS (7)
  - No therapeutic response [None]
  - Drug ineffective [None]
  - Listless [None]
  - Weight decreased [None]
  - Irritability [None]
  - Aggression [None]
  - Activation syndrome [None]
